FAERS Safety Report 7494671-3 (Version None)
Quarter: 2011Q2

REPORT INFORMATION
  Report Type: 
  Country: None (occurrence: None)
  Receive Date: 20110520
  Receipt Date: 20110516
  Transmission Date: 20111010
  Serious: Yes (Death, Hospitalization, Other)
  Sender: FDA-Public Use
  Company Number: US-PFIZER INC-2011105335

PATIENT
  Age: 40 Year
  Sex: Female

DRUGS (4)
  1. LAMOTRIGINE [Suspect]
  2. QUETIAPINE [Suspect]
  3. VENLAFAXINE HCL [Suspect]
  4. MIRTAZAPINE [Suspect]

REACTIONS (1)
  - AGRANULOCYTOSIS [None]
